FAERS Safety Report 8560275-4 (Version None)
Quarter: 2012Q3

REPORT INFORMATION
  Report Type: 
  Country: None (occurrence: None)
  Receive Date: 20120802
  Receipt Date: 20120723
  Transmission Date: 20120928
  Serious: Yes (Hospitalization, Other)
  Sender: FDA-Public Use
  Company Number: US-ROCHE-1082764

PATIENT
  Sex: Female

DRUGS (12)
  1. ZOFRAN [Concomitant]
     Dates: start: 20120524
  2. VEMURAFENIB [Suspect]
     Indication: MALIGNANT MELANOMA
     Route: 048
     Dates: start: 20120503, end: 20120620
  3. VEMURAFENIB [Suspect]
     Route: 048
     Dates: start: 20120628, end: 20120709
  4. IBUPROFEN [Concomitant]
  5. IPILIMUMAB [Suspect]
     Indication: MALIGNANT MELANOMA
     Route: 042
     Dates: start: 20120531, end: 20120621
  6. MULTI-VITAMIN [Concomitant]
     Dates: start: 20120524
  7. OXYCODONE HCL [Concomitant]
     Dates: start: 20120524
  8. LECITHIN [Concomitant]
     Dates: start: 20111007
  9. IBUPROFEN [Concomitant]
     Dates: start: 20120510
  10. IPILIMUMAB [Suspect]
     Route: 042
     Dates: end: 20120712
  11. FISH OIL [Concomitant]
     Dates: start: 20111010
  12. CALCIUM NOS/MAGNESIUM NOS [Concomitant]
     Dates: start: 20111007

REACTIONS (4)
  - HEADACHE [None]
  - PYREXIA [None]
  - ALANINE AMINOTRANSFERASE INCREASED [None]
  - TEMPORAL ARTERITIS [None]
